FAERS Safety Report 14097927 (Version 1)
Quarter: 2017Q4

REPORT INFORMATION
  Report Type: Spontaneous
  Country: US (occurrence: US)
  Receive Date: 20171017
  Receipt Date: 20171017
  Transmission Date: 20180321
  Serious: No
  Sender: FDA-Public Use
  Company Number: None

PATIENT
  Age: 26 Year
  Sex: Female
  Weight: 64.35 kg

DRUGS (2)
  1. BROPHEN/PSEUDO/DEXTRO HBR SYRUP [Suspect]
     Active Substance: BROMPHENIRAMINE MALEATE\DEXTROMETHORPHAN HYDROBROMIDE\PSEUDOEPHEDRINE HYDROCHLORIDE
     Indication: COUGH
     Dosage: QUANTITY:10 LIQUID;?
     Route: 048
     Dates: start: 20171016, end: 20171017
  2. POTASSIUM [Concomitant]
     Active Substance: POTASSIUM

REACTIONS (1)
  - Insomnia [None]

NARRATIVE: CASE EVENT DATE: 20171016
